FAERS Safety Report 22927284 (Version 5)
Quarter: 2023Q4

REPORT INFORMATION
  Report Type: Spontaneous
  Country: US (occurrence: US)
  Receive Date: 20230911
  Receipt Date: 20231228
  Transmission Date: 20240110
  Serious: Yes (Other)
  Sender: FDA-Public Use
  Company Number: US-BRISTOL-MYERS SQUIBB COMPANY-2023-127534

PATIENT
  Age: 76 Year
  Sex: Male
  Weight: 72.57 kg

DRUGS (1)
  1. LENALIDOMIDE [Suspect]
     Active Substance: LENALIDOMIDE
     Indication: Plasma cell myeloma
     Dosage: 1 CAPSULE FOR 21 DAYS ON THEN 7 DAYS OFF
     Route: 048
     Dates: start: 20230901

REACTIONS (4)
  - Constipation [Not Recovered/Not Resolved]
  - Choking [Unknown]
  - Fatigue [Unknown]
  - Productive cough [Unknown]

NARRATIVE: CASE EVENT DATE: 20230903
